FAERS Safety Report 7318672-0 (Version None)
Quarter: 2011Q1

REPORT INFORMATION
  Report Type: 
  Country: None (occurrence: None)
  Receive Date: 20110228
  Receipt Date: 20110214
  Transmission Date: 20110831
  Serious: Yes (Hospitalization)
  Sender: FDA-Public Use
  Company Number: PL-RANBAXY-2011RR-41173

PATIENT
  Sex: Female
  Weight: 12 kg

DRUGS (1)
  1. KLABAX [Suspect]
     Indication: PHARYNGITIS
     Dosage: 15 MG/KG, BID
     Route: 048
     Dates: start: 20101211

REACTIONS (3)
  - SALIVARY HYPERSECRETION [None]
  - BRONCHOSPASM [None]
  - VOMITING [None]
